FAERS Safety Report 18015804 (Version 3)
Quarter: 2021Q2

REPORT INFORMATION
  Report Type: Spontaneous
  Country: US (occurrence: US)
  Receive Date: 20200713
  Receipt Date: 20210412
  Transmission Date: 20210717
  Serious: Yes (Hospitalization, Other)
  Sender: FDA-Public Use
  Company Number: US-PFIZER INC-2020265042

PATIENT
  Age: 16 Year
  Sex: Male

DRUGS (2)
  1. FENTANYL CITRATE. [Suspect]
     Active Substance: FENTANYL CITRATE
     Dosage: UNK
  2. OXYCODONE [Suspect]
     Active Substance: OXYCODONE
     Dosage: 3?4 FAKE OXYCODONE 10?325 MG PILLS

REACTIONS (7)
  - Oxidative stress [Unknown]
  - Basal ganglion degeneration [Unknown]
  - Intentional overdose [Unknown]
  - Toxicity to various agents [Unknown]
  - Neurotoxicity [Unknown]
  - White matter lesion [Unknown]
  - Leukoencephalopathy [Unknown]
